FAERS Safety Report 11274038 (Version 1)
Quarter: 2015Q3

REPORT INFORMATION
  Report Type: Report from Study
  Country: US (occurrence: US)
  Receive Date: 20150715
  Receipt Date: 20150715
  Transmission Date: 20151125
  Serious: Yes (Other)
  Sender: FDA-Public Use
  Company Number: US-ASTRAZENECA-2014SE95037

PATIENT
  Age: 61 Year
  Sex: Male
  Weight: 81.6 kg

DRUGS (8)
  1. CAPRELSA [Suspect]
     Active Substance: VANDETANIB
     Indication: MEDULLARY THYROID CANCER
     Route: 048
     Dates: start: 20141226, end: 20150624
  2. SULFASALAZINE. [Concomitant]
     Active Substance: SULFASALAZINE
     Indication: COLITIS
     Route: 048
     Dates: start: 2014
  3. FERROUS SULFATE [Concomitant]
     Active Substance: FERROUS SULFATE\FERROUS SULFATE, DRIED
     Indication: IRON DEFICIENCY
     Route: 048
     Dates: start: 2015
  4. ACIDOPHILUS [Concomitant]
     Active Substance: LACTOBACILLUS ACIDOPHILUS
     Indication: COLITIS
     Route: 048
     Dates: start: 2015
  5. CAPRELSA [Suspect]
     Active Substance: VANDETANIB
     Indication: MEDULLARY THYROID CANCER
     Route: 048
     Dates: start: 20150624
  6. CAPRELSA [Suspect]
     Active Substance: VANDETANIB
     Indication: MEDULLARY THYROID CANCER
     Route: 048
     Dates: start: 20141029, end: 20141126
  7. CAPRELSA [Suspect]
     Active Substance: VANDETANIB
     Indication: MEDULLARY THYROID CANCER
     Route: 048
     Dates: start: 20141208, end: 20141220
  8. BENTYL [Concomitant]
     Active Substance: DICYCLOMINE HYDROCHLORIDE
     Indication: IRRITABLE BOWEL SYNDROME
     Route: 048
     Dates: start: 20150511

REACTIONS (17)
  - Asthenia [Unknown]
  - Dehydration [Unknown]
  - Drug dose omission [Recovered/Resolved]
  - Neoplasm [Unknown]
  - Colitis ulcerative [Unknown]
  - Haematochezia [Unknown]
  - Blood iron decreased [Unknown]
  - Acne [Recovering/Resolving]
  - Skin exfoliation [Unknown]
  - Haemorrhage [Unknown]
  - Intentional product misuse [Unknown]
  - Bacterial infection [Recovering/Resolving]
  - Skin discolouration [Unknown]
  - Abdominal pain upper [Unknown]
  - Faecal incontinence [Unknown]
  - Diarrhoea [Unknown]
  - Rash [Recovering/Resolving]

NARRATIVE: CASE EVENT DATE: 2014
